FAERS Safety Report 10723699 (Version 1)
Quarter: 2015Q1

REPORT INFORMATION
  Report Type: Spontaneous
  Country: US (occurrence: None)
  Receive Date: 20150114
  Receipt Date: 20150114
  Transmission Date: 20150721
  Serious: Yes (Hospitalization, Other)
  Sender: FDA-Public Use
  Company Number: ADR-2015-00042

PATIENT
  Age: 61 Year
  Sex: Male

DRUGS (3)
  1. BACLOFEN. [Suspect]
     Active Substance: BACLOFEN
     Indication: PAIN
  2. NEXIUM [Suspect]
     Active Substance: ESOMEPRAZOLE MAGNESIUM
  3. MORPHINE [Suspect]
     Active Substance: MORPHINE
     Indication: PAIN

REACTIONS (3)
  - Feeling abnormal [None]
  - Spinal column injury [None]
  - Overdose [None]
